FAERS Safety Report 25030681 (Version 1)
Quarter: 2025Q1

REPORT INFORMATION
  Report Type: Spontaneous
  Country: IT (occurrence: IT)
  Receive Date: 20250303
  Receipt Date: 20250303
  Transmission Date: 20250408
  Serious: Yes (Other)
  Sender: HIKMA
  Company Number: IT-HIKMA PHARMACEUTICALS USA INC.-IT-H14001-25-01737

PATIENT
  Age: 77 Year
  Sex: Male
  Weight: 80 kg

DRUGS (2)
  1. CARBOPLATIN [Suspect]
     Active Substance: CARBOPLATIN
     Indication: Oesophageal carcinoma
     Route: 042
     Dates: start: 20240731, end: 20240828
  2. PACLITAXEL [Suspect]
     Active Substance: PACLITAXEL
     Indication: Oesophageal carcinoma
     Route: 042
     Dates: start: 20240731, end: 20240828

REACTIONS (3)
  - Dysphagia [Recovering/Resolving]
  - Neutropenia [Recovered/Resolved]
  - Vomiting [Recovered/Resolved]

NARRATIVE: CASE EVENT DATE: 20240801
